FAERS Safety Report 5363331-7 (Version None)
Quarter: 2007Q2

REPORT INFORMATION
  Report Type: 
  Country: None (occurrence: None)
  Receive Date: 20070620
  Receipt Date: 20070618
  Transmission Date: 20071010
  Serious: Yes (Death, Hospitalization)
  Sender: FDA-Public Use
  Company Number: GB-AMGEN-US229178

PATIENT
  Sex: Male

DRUGS (1)
  1. ENBREL [Suspect]
     Indication: DRUG USE FOR UNKNOWN INDICATION
     Route: 058
     Dates: start: 20050801, end: 20070301

REACTIONS (6)
  - CONCOMITANT DISEASE PROGRESSION [None]
  - FALL [None]
  - HEAD INJURY [None]
  - INJECTION SITE VESICLES [None]
  - JOINT STIFFNESS [None]
  - RENAL FAILURE [None]
